FAERS Safety Report 25528366 (Version 1)
Quarter: 2025Q3

REPORT INFORMATION
  Report Type: Other
  Country: CN (occurrence: CN)
  Receive Date: 20250708
  Receipt Date: 20250708
  Transmission Date: 20251021
  Serious: Yes (Hospitalization)
  Sender: Phathom Pharmaceuticals
  Company Number: CN-PHATHOM PHARMACEUTICALS INC.-2025PHT01689

PATIENT
  Age: 69 Year
  Sex: Female

DRUGS (4)
  1. VONOPRAZAN [Suspect]
     Active Substance: VONOPRAZAN
     Indication: Helicobacter infection
     Dosage: 20 MG, 2X/DAY
     Route: 048
     Dates: start: 20250617, end: 20250617
  2. CLARITHROMYCIN [Concomitant]
     Active Substance: CLARITHROMYCIN
     Dates: start: 20250617, end: 20250617
  3. BISMUTH [Concomitant]
     Active Substance: BISMUTH SUBSALICYLATE
     Dates: start: 20250617, end: 20250617
  4. LEVOFLOXACIN [Concomitant]
     Active Substance: LEVOFLOXACIN

REACTIONS (1)
  - Shock [Recovering/Resolving]

NARRATIVE: CASE EVENT DATE: 20250617
